FAERS Safety Report 4641304-7 (Version None)
Quarter: 2005Q2

REPORT INFORMATION
  Report Type: 
  Country: None (occurrence: None)
  Receive Date: 20050420
  Receipt Date: 20050420
  Transmission Date: 20051028
  Serious: Yes (Hospitalization)
  Sender: FDA-Public Use
  Company Number: None

PATIENT

DRUGS (1)
  1. MORPHINE [Suspect]
     Dosage: 30 MG EXT REL PO BID, 4 MG IV Q4 HR PRN 10 MG PO Q 4 HR PRN PAIN
     Route: 042

REACTIONS (1)
  - ILEUS [None]
